FAERS Safety Report 26177148 (Version 1)
Quarter: 2025Q4

REPORT INFORMATION
  Report Type: Spontaneous
  Country: EU (occurrence: EU)
  Receive Date: 20251219
  Receipt Date: 20251219
  Transmission Date: 20260118
  Serious: Yes (Other)
  Sender: HETERO
  Company Number: None

PATIENT
  Age: 6 Month
  Sex: Male
  Weight: 7 kg

DRUGS (3)
  1. ENALAPRIL [Suspect]
     Active Substance: ENALAPRIL
     Indication: Product used for unknown indication
     Dosage: QD C/24 H
     Route: 048
     Dates: start: 20251129, end: 20251130
  2. OMEPRAZOLE [Concomitant]
     Active Substance: OMEPRAZOLE
     Indication: Gastrooesophageal reflux disease
     Dosage: 7.6 MILLIGRAM, QD
     Route: 048
     Dates: start: 20251128
  3. VITAMIN D3 [Concomitant]
     Active Substance: CHOLECALCIFEROL
     Indication: Vitamin supplementation
     Dosage: 400 INTERNATIONAL UNIT (400.0 UI DE)
     Route: 048
     Dates: start: 20250607

REACTIONS (5)
  - Decreased appetite [Recovered/Resolved]
  - Restlessness [Recovered/Resolved]
  - Product dispensing error [Unknown]
  - Off label use [Unknown]
  - Product administration error [Unknown]

NARRATIVE: CASE EVENT DATE: 20251130
